FAERS Safety Report 8458829-9 (Version None)
Quarter: 2012Q2

REPORT INFORMATION
  Report Type: 
  Country: None (occurrence: None)
  Receive Date: 20120622
  Receipt Date: 20120612
  Transmission Date: 20120825
  Serious: No
  Sender: FDA-Public Use
  Company Number: JP-PFIZER INC-2012144753

PATIENT
  Age: 70 Year
  Sex: Male

DRUGS (5)
  1. POTASSIUM [Concomitant]
     Dosage: UNK
     Dates: start: 20120512
  2. FUROSEMIDE [Concomitant]
     Indication: CARDIAC FAILURE
     Dosage: UNK
     Dates: start: 20120516, end: 20120525
  3. VITAMINS NOS [Concomitant]
     Dosage: UNK
     Dates: start: 20120516
  4. FOSPHENYTOIN SODIUM [Suspect]
     Indication: EPILEPSY
     Dosage: 750 MG
     Route: 042
     Dates: start: 20120525, end: 20120529
  5. HYDROCORTISONE [Concomitant]
     Indication: PLEURAL EFFUSION
     Dosage: UNK
     Route: 042
     Dates: start: 20120518, end: 20120522

REACTIONS (1)
  - RASH [None]
